FAERS Safety Report 20375874 (Version 1)
Quarter: 2022Q1

REPORT INFORMATION
  Report Type: Report from Study
  Country: US (occurrence: None)
  Receive Date: 20220125
  Receipt Date: 20220125
  Transmission Date: 20220423
  Serious: Yes (Hospitalization, Other)
  Sender: FDA-Public Use
  Company Number: US-ROCHE-2431704

PATIENT
  Age: 75 Year
  Sex: Female
  Weight: 66.9 kg

DRUGS (3)
  1. ATEZOLIZUMAB [Suspect]
     Active Substance: ATEZOLIZUMAB
     Indication: Colorectal cancer metastatic
     Route: 042
     Dates: start: 20190719, end: 20190719
  2. FLUOROURACIL\LEUCOVORIN CALCIUM\OXALIPLATIN [Suspect]
     Active Substance: FLUOROURACIL\LEUCOVORIN CALCIUM\OXALIPLATIN
     Indication: Colorectal cancer metastatic
     Dosage: OXALIPLATIN IV OVER 2 HOURS ON DAY 1 CYCLES 1-10, LEUCOVORIN CALCIUM IV OVER 2 HOURS ON DAY 1, AND
     Route: 042
     Dates: start: 20190815
  3. FLUOROURACIL\LEUCOVORIN CALCIUM\OXALIPLATIN [Suspect]
     Active Substance: FLUOROURACIL\LEUCOVORIN CALCIUM\OXALIPLATIN
     Route: 042
     Dates: start: 20190828

REACTIONS (5)
  - Diarrhoea [Recovered/Resolved]
  - Nausea [Unknown]
  - Fatigue [Unknown]
  - Clostridium difficile infection [Recovered/Resolved]
  - Enterocolitis [Unknown]

NARRATIVE: CASE EVENT DATE: 20190903
